FAERS Safety Report 15165798 (Version 1)
Quarter: 2018Q3

REPORT INFORMATION
  Report Type: Spontaneous
  Country: US (occurrence: US)
  Receive Date: 20180719
  Receipt Date: 20180719
  Transmission Date: 20181010
  Serious: Yes (Hospitalization)
  Sender: FDA-Public Use
  Company Number: US-SA-2018SA161827

PATIENT
  Age: 80 Year
  Sex: Female

DRUGS (2)
  1. DULCOLAX PINK [Suspect]
     Active Substance: BISACODYL
     Dosage: 2 DF, QD
  2. DULCOLAX (BISACODYL) [Concomitant]
     Active Substance: BISACODYL
     Dosage: UNK UNK, HS

REACTIONS (3)
  - Constipation [Not Recovered/Not Resolved]
  - Product substitution issue [None]
  - Diarrhoea [Unknown]
